FAERS Safety Report 4616050-6 (Version None)
Quarter: 2005Q1

REPORT INFORMATION
  Report Type: 
  Country: None (occurrence: None)
  Receive Date: 20050321
  Receipt Date: 20050303
  Transmission Date: 20050727
  Serious: Yes (Hospitalization, Disabling, Congenital Anomaly)
  Sender: FDA-Public Use
  Company Number: T05-GER-01008-02

PATIENT
  Sex: Male

DRUGS (2)
  1. CIPRAMIL (CITALOPRAM HYDROBROMIDE) [Suspect]
     Dosage: 20 MG QD TRANSPLACENTAL
     Route: 064
     Dates: start: 20020101, end: 20020711
  2. TIMONIL (CARBAMAZEPINE) [Suspect]
     Dosage: 600 MG QD TRANSPLACENTAL
     Route: 064
     Dates: start: 20000901, end: 20020711

REACTIONS (5)
  - CONGENITAL ANOMALY [None]
  - CONGENITAL ARTERIAL MALFORMATION [None]
  - DRUG EXPOSURE DURING PREGNANCY [None]
  - POLAND'S SYNDROME [None]
  - PREGNANCY [None]
